FAERS Safety Report 7497423-3 (Version None)
Quarter: 2011Q2

REPORT INFORMATION
  Report Type: 
  Country: None (occurrence: None)
  Receive Date: 20110523
  Receipt Date: 20110516
  Transmission Date: 20111010
  Serious: Yes (Hospitalization, Congenital Anomaly, Other)
  Sender: FDA-Public Use
  Company Number: US-PFIZER INC-2011105800

PATIENT
  Sex: Male

DRUGS (3)
  1. EFFEXOR [Suspect]
     Dosage: 37.5 MG, 2X/DAY
     Route: 064
     Dates: start: 20100112
  2. FLEXERIL [Concomitant]
     Dosage: 10 MG, ONE TABLET AT BED TIME
     Route: 064
     Dates: start: 20091022, end: 20100218
  3. EFFEXOR XR [Suspect]
     Dosage: 150 MG, 1X/DAY
     Route: 064
     Dates: start: 20091022, end: 20100218

REACTIONS (14)
  - DRUG EXPOSURE DURING PREGNANCY [None]
  - PECTUS CARINATUM [None]
  - TRACHEOMALACIA [None]
  - CARDIAC FAILURE CONGESTIVE [None]
  - BRONCHOMALACIA [None]
  - PULMONARY OEDEMA [None]
  - TRICUSPID VALVE INCOMPETENCE [None]
  - LARYNGOMALACIA [None]
  - VENTRICULAR SEPTAL DEFECT [None]
  - CARDIOMEGALY [None]
  - COARCTATION OF THE AORTA [None]
  - ATRIAL SEPTAL DEFECT [None]
  - WEIGHT GAIN POOR [None]
  - GASTROOESOPHAGEAL REFLUX DISEASE [None]
